FAERS Safety Report 23769737 (Version 1)
Quarter: 2024Q2

REPORT INFORMATION
  Report Type: Spontaneous
  Country: US (occurrence: US)
  Receive Date: 20240422
  Receipt Date: 20240422
  Transmission Date: 20240715
  Serious: No
  Sender: FDA-Public Use
  Company Number: US-HALEON-2169411

PATIENT

DRUGS (1)
  1. ABREVA [Suspect]
     Active Substance: DOCOSANOL
     Indication: Paraesthesia
     Dosage: TIME INTERVAL: 0.33333333 DAYS

REACTIONS (1)
  - Therapeutic product effect incomplete [Unknown]
